FAERS Safety Report 4946332-X (Version None)
Quarter: 2006Q1

REPORT INFORMATION
  Report Type: 
  Country: None (occurrence: None)
  Receive Date: 20060316
  Receipt Date: 20060316
  Transmission Date: 20060701
  Serious: Yes (Other)
  Sender: FDA-Public Use
  Company Number: None

PATIENT
  Sex: Male
  Weight: 88.4514 kg

DRUGS (1)
  1. COMMIT LOGENZE 2 MG GLAXOSMITHKLINE [Suspect]
     Indication: SMOKING CESSATION THERAPY
     Dosage: 2 MG AS DIRECTED PO
     Route: 048
     Dates: start: 20041102, end: 20050117

REACTIONS (3)
  - EAR INFECTION [None]
  - TACHYCARDIA [None]
  - TINNITUS [None]
